FAERS Safety Report 6093051-5 (Version None)
Quarter: 2009Q1

REPORT INFORMATION
  Report Type: 
  Country: None (occurrence: None)
  Receive Date: 20090224
  Receipt Date: 20090219
  Transmission Date: 20090719
  Serious: Yes (Death)
  Sender: FDA-Public Use
  Company Number: CERZ-1000475

PATIENT
  Age: 7 Year
  Sex: Female
  Weight: 17 kg

DRUGS (11)
  1. CEREZYME [Suspect]
     Indication: GAUCHER'S DISEASE
     Dosage: SEE IMAGE
     Route: 042
     Dates: start: 20040824, end: 20050325
  2. CEREZYME [Suspect]
     Indication: GAUCHER'S DISEASE
     Dosage: SEE IMAGE
     Route: 042
     Dates: start: 20050406, end: 20060303
  3. CEREZYME [Suspect]
     Indication: GAUCHER'S DISEASE
     Dosage: SEE IMAGE
     Route: 042
     Dates: start: 20060316, end: 20060928
  4. CEREZYME [Suspect]
     Indication: GAUCHER'S DISEASE
     Dosage: SEE IMAGE
     Route: 042
     Dates: start: 20061012, end: 20081220
  5. PHENOBARBITAL TAB [Concomitant]
  6. CLOBAZAM (CLOBAZAM) [Concomitant]
  7. DIAZEPAM [Concomitant]
  8. DIAZEPAM [Concomitant]
  9. VALPROATE SODIUM [Concomitant]
  10. TAZANIDINE HYDROCHLORIDE (TAZANIDINE HYDROCHLORIDE) [Concomitant]
  11. DANTROLENE SODIUM [Concomitant]

REACTIONS (6)
  - CARDIO-RESPIRATORY ARREST [None]
  - CONVULSION [None]
  - GAUCHER'S DISEASE [None]
  - HEART RATE INCREASED [None]
  - PALLOR [None]
  - PYREXIA [None]
